FAERS Safety Report 19974117 (Version 1)
Quarter: 2021Q4

REPORT INFORMATION
  Report Type: Spontaneous
  Country: US (occurrence: US)
  Receive Date: 20211020
  Receipt Date: 20211020
  Transmission Date: 20220303
  Serious: Yes (unspecified)
  Sender: FDA-Public Use
  Company Number: None

PATIENT
  Age: 57 Year
  Sex: Female
  Weight: 66.5 kg

DRUGS (1)
  1. REGEN-COV [Suspect]
     Active Substance: CASIRIVIMAB\IMDEVIMAB
     Indication: COVID-19 treatment
     Dates: start: 20211013, end: 20211013

REACTIONS (4)
  - Chills [None]
  - Anxiety [None]
  - Heart rate increased [None]
  - Chills [None]

NARRATIVE: CASE EVENT DATE: 20211013
